FAERS Safety Report 4754771-5 (Version None)
Quarter: 2005Q3

REPORT INFORMATION
  Report Type: 
  Country: None (occurrence: None)
  Receive Date: 20050829
  Receipt Date: 20050728
  Transmission Date: 20060218
  Serious: Yes (Disabling, Other)
  Sender: FDA-Public Use
  Company Number: PHBS2005CA11091

PATIENT
  Sex: Female

DRUGS (1)
  1. MIACALCIN [Suspect]
     Dosage: 1NASAL SPRAY/DAY
     Route: 045
     Dates: start: 20050621, end: 20050728

REACTIONS (3)
  - FACIAL PALSY [None]
  - HYPOAESTHESIA [None]
  - SPEECH DISORDER [None]
